FAERS Safety Report 6903101-9 (Version None)
Quarter: 2010Q3

REPORT INFORMATION
  Report Type: 
  Country: None (occurrence: None)
  Receive Date: 20100803
  Receipt Date: 20080903
  Transmission Date: 20110219
  Serious: No
  Sender: FDA-Public Use
  Company Number: US-PFIZER INC-2008058741

PATIENT
  Sex: Female
  Weight: 45.4 kg

DRUGS (7)
  1. LYRICA [Suspect]
     Indication: BACK PAIN
     Dates: start: 20080710
  2. LYRICA [Suspect]
     Indication: SPINAL COLUMN STENOSIS
  3. SYNTHROID [Concomitant]
  4. FOSAMAX [Concomitant]
  5. ACETYLSALICYLIC ACID SRT [Concomitant]
  6. PROTONIX [Concomitant]
  7. ALL OTHER THERAPEUTIC PRODUCTS [Concomitant]

REACTIONS (2)
  - DISORIENTATION [None]
  - FATIGUE [None]
